FAERS Safety Report 4315776-1 (Version None)
Quarter: 2004Q1

REPORT INFORMATION
  Report Type: 
  Country: None (occurrence: None)
  Receive Date: 20040310
  Receipt Date: 20040305
  Transmission Date: 20041129
  Serious: Yes (Hospitalization)
  Sender: FDA-Public Use
  Company Number: 04-NIP00024 (0)

PATIENT
  Age: 24 Year
  Sex: Male
  Weight: 63.7 kg

DRUGS (1)
  1. NIPENT [Suspect]
     Indication: GRAFT VERSUS HOST DISEASE
     Dosage: 4 MG/KG (Q 2 WEEKS) INTRAVENOUS
     Route: 042
     Dates: start: 20031007, end: 20040112

REACTIONS (1)
  - OBLITERATIVE BRONCHIOLITIS [None]
